FAERS Safety Report 15538795 (Version 1)
Quarter: 2018Q4

REPORT INFORMATION
  Report Type: Spontaneous
  Country: US (occurrence: US)
  Receive Date: 20181022
  Receipt Date: 20181022
  Transmission Date: 20190205
  Serious: Yes (Other)
  Sender: FDA-Public Use
  Company Number: US-SA-2017SA265495

PATIENT
  Age: 43 Year
  Sex: Female
  Weight: 53 kg

DRUGS (11)
  1. TAXOTERE [Suspect]
     Active Substance: DOCETAXEL
     Indication: BREAST CANCER FEMALE
     Dosage: 110 MG, Q3W
     Route: 042
     Dates: start: 20080721, end: 20080721
  2. DOCETAXEL. [Concomitant]
     Active Substance: DOCETAXEL
  3. SODIUM CHLORIDE. [Concomitant]
     Active Substance: SODIUM CHLORIDE
  4. DECADRON [DEXAMETHASONE ACETATE] [Concomitant]
  5. NEOSAR [Concomitant]
     Active Substance: CYCLOPHOSPHAMIDE
  6. NEULASTA [Concomitant]
     Active Substance: PEGFILGRASTIM
  7. NORDETTE [Concomitant]
     Active Substance: ETHINYL ESTRADIOL\LEVONORGESTREL
     Dosage: UNK
     Dates: start: 200004, end: 200407
  8. DOXORUBICIN [Concomitant]
     Active Substance: DOXORUBICIN
  9. LUPRON [Concomitant]
     Active Substance: LEUPROLIDE ACETATE
  10. TAXOTERE [Suspect]
     Active Substance: DOCETAXEL
     Dosage: 110 MG, Q3W
     Route: 042
     Dates: start: 20081103, end: 20081103
  11. DOXIL [DICLOXACILLIN SODIUM MONOHYDRATE] [Concomitant]

REACTIONS (2)
  - Alopecia [Recovering/Resolving]
  - Psychological trauma [Unknown]

NARRATIVE: CASE EVENT DATE: 20090201
